FAERS Safety Report 7456445-9 (Version None)
Quarter: 2011Q2

REPORT INFORMATION
  Report Type: 
  Country: None (occurrence: None)
  Receive Date: 20110503
  Receipt Date: 20110218
  Transmission Date: 20111010
  Serious: No
  Sender: FDA-Public Use
  Company Number: US-JNJFOC-20110206668

PATIENT
  Age: 3 Decade
  Sex: Female
  Weight: 122.47 kg

DRUGS (1)
  1. INVEGA SUSTENNA [Suspect]
     Indication: PRODUCT USED FOR UNKNOWN INDICATION
     Route: 030

REACTIONS (2)
  - PRODUCT QUALITY ISSUE [None]
  - WEIGHT INCREASED [None]
